FAERS Safety Report 4975659-0 (Version None)
Quarter: 2006Q1

REPORT INFORMATION
  Report Type: 
  Country: None (occurrence: None)
  Receive Date: 20060222
  Receipt Date: 20050215
  Transmission Date: 20060701
  Serious: Yes (Other)
  Sender: FDA-Public Use
  Company Number: HQWYE224503NOV04

PATIENT
  Age: 46 Year
  Sex: Female

DRUGS (1)
  1. PROTONIX [Suspect]
     Dosage: UNKNOWN
     Route: 065

REACTIONS (3)
  - ACCIDENTAL EXPOSURE [None]
  - DERMATITIS CONTACT [None]
  - HYPERSENSITIVITY [None]
